FAERS Safety Report 13186276 (Version 1)
Quarter: 2017Q1

REPORT INFORMATION
  Report Type: Spontaneous
  Country: FR (occurrence: FR)
  Receive Date: 20170204
  Receipt Date: 20170204
  Transmission Date: 20170428
  Serious: Yes (Hospitalization, Disabling, Other)
  Sender: FDA-Public Use
  Company Number: FR-BRISTOL-MYERS SQUIBB COMPANY-BMS-2017-007901

PATIENT
  Age: 60 Year
  Sex: Male

DRUGS (1)
  1. YERVOY [Suspect]
     Active Substance: IPILIMUMAB
     Indication: MELANOMA RECURRENT
     Dosage: 3 MG/KG, UNK
     Route: 065
     Dates: start: 20130109, end: 20130313

REACTIONS (7)
  - Vitritis [Recovering/Resolving]
  - Eye operation [Unknown]
  - Macular fibrosis [Unknown]
  - Uveitis [Recovering/Resolving]
  - Visual acuity reduced [Recovering/Resolving]
  - Cataract operation [Unknown]
  - Papilloedema [Recovering/Resolving]

NARRATIVE: CASE EVENT DATE: 20130408
